FAERS Safety Report 26077159 (Version 1)
Quarter: 2025Q4

REPORT INFORMATION
  Report Type: Spontaneous
  Country: US (occurrence: None)
  Receive Date: 20251121
  Receipt Date: 20251121
  Transmission Date: 20260117
  Serious: Yes (Hospitalization)
  Sender: FDA-CTU
  Company Number: None

PATIENT
  Age: 40 Year
  Sex: Female

DRUGS (5)
  1. VUMERITY [Suspect]
     Active Substance: DIROXIMEL FUMARATE
     Indication: Multiple sclerosis
     Dosage: FREQUENCY : TWICE A DAY;?
     Route: 048
     Dates: start: 20250701
  2. BACLOFEN [Concomitant]
     Active Substance: BACLOFEN
  3. TUMS CHEWY BITES BERRY 32 [Concomitant]
  4. VALTREX 1GM TABLETS [Concomitant]
  5. VALTREX 600MG [Concomitant]

REACTIONS (3)
  - Loss of consciousness [None]
  - Fall [None]
  - Paralysis [None]

NARRATIVE: CASE EVENT DATE: 20251110
